FAERS Safety Report 18058488 (Version 1)
Quarter: 2020Q3

REPORT INFORMATION
  Report Type: Spontaneous
  Country: US (occurrence: US)
  Receive Date: 20200722
  Receipt Date: 20200722
  Transmission Date: 20201103
  Serious: Yes (Death)
  Sender: FDA-Public Use
  Company Number: None

PATIENT
  Age: 33 Year
  Sex: Female
  Weight: 97.5 kg

DRUGS (6)
  1. VANCOMYCIN IV [Concomitant]
     Active Substance: VANCOMYCIN HYDROCHLORIDE
     Dates: start: 20200717, end: 20200720
  2. DEXAMETHASONE 2 MG [Concomitant]
     Dates: start: 20200715, end: 20200720
  3. METRONIDAZOLE 500 MG [Concomitant]
     Active Substance: METRONIDAZOLE
     Dates: start: 20200715, end: 20200720
  4. FAMOTIDINE 20 MG [Concomitant]
     Active Substance: FAMOTIDINE
     Dates: start: 20200716, end: 20200720
  5. REMDESIVIR. [Suspect]
     Active Substance: REMDESIVIR
     Indication: COVID-19
     Route: 040
     Dates: start: 20200718, end: 20200720
  6. CEFEPIME 2 GM IV [Concomitant]
     Dates: start: 20200715, end: 20200720

REACTIONS (2)
  - Respiratory failure [None]
  - Paralysis [None]
